FAERS Safety Report 4808898-X (Version None)
Quarter: 2005Q4

REPORT INFORMATION
  Report Type: 
  Country: None (occurrence: None)
  Receive Date: 20051021
  Receipt Date: 20041022
  Transmission Date: 20060501
  Serious: No
  Sender: FDA-Public Use
  Company Number: FR_041005104

PATIENT
  Age: 30 Year
  Sex: Male

DRUGS (1)
  1. ZYPREXA [Suspect]
     Dosage: 10 MG/2 DAY
     Route: 048

REACTIONS (2)
  - ANAEMIA [None]
  - ORTHOSTATIC HYPOTENSION [None]
